FAERS Safety Report 6488860-4 (Version None)
Quarter: 2009Q4

REPORT INFORMATION
  Report Type: 
  Country: None (occurrence: None)
  Receive Date: 20091207
  Receipt Date: 20091130
  Transmission Date: 20100525
  Serious: Yes (Other)
  Sender: FDA-Public Use
  Company Number: 2009SP038894

PATIENT
  Age: 55 Year
  Sex: Female

DRUGS (1)
  1. DESLORATADINE [Suspect]
     Indication: RHINITIS ALLERGIC
     Dosage: 5 MG; QD; PO
     Route: 048
     Dates: start: 20090220, end: 20090227

REACTIONS (1)
  - AMNESIA [None]
